FAERS Safety Report 13755562 (Version 3)
Quarter: 2020Q2

REPORT INFORMATION
  Report Type: Spontaneous
  Country: FR (occurrence: FR)
  Receive Date: 20170714
  Receipt Date: 20200518
  Transmission Date: 20200713
  Serious: Yes (Hospitalization, Other)
  Sender: FDA-Public Use
  Company Number: FR-ACCORD-053619

PATIENT
  Age: 8 Decade
  Sex: Male

DRUGS (2)
  1. CLOBETASOL [Suspect]
     Active Substance: CLOBETASOL
     Indication: PEMPHIGOID
     Route: 061
  2. METHOTREXATE. [Suspect]
     Active Substance: METHOTREXATE
     Indication: PEMPHIGOID
     Dosage: LOW-DOSE
     Route: 048

REACTIONS (4)
  - Rebound effect [Recovered/Resolved]
  - Disease recurrence [Recovered/Resolved]
  - Human herpesvirus 8 infection [Unknown]
  - Kaposi^s sarcoma [Recovered/Resolved]
